FAERS Safety Report 8446152-8 (Version None)
Quarter: 2012Q2

REPORT INFORMATION
  Report Type: 
  Country: None (occurrence: None)
  Receive Date: 20120618
  Receipt Date: 20120612
  Transmission Date: 20120825
  Serious: Yes (Other)
  Sender: FDA-Public Use
  Company Number: US-PFIZER INC-2012142141

PATIENT
  Sex: Male

DRUGS (1)
  1. TOVIAZ [Suspect]
     Indication: BLADDER DISORDER
     Dosage: UNK

REACTIONS (5)
  - LIP SWELLING [None]
  - SWELLING FACE [None]
  - HYPERSENSITIVITY [None]
  - SWOLLEN TONGUE [None]
  - PHARYNGEAL OEDEMA [None]
